FAERS Safety Report 16197416 (Version 2)
Quarter: 2019Q2

REPORT INFORMATION
  Report Type: Spontaneous
  Country: US (occurrence: US)
  Receive Date: 20190415
  Receipt Date: 20190624
  Transmission Date: 20190711
  Serious: Yes (Hospitalization, Other)
  Sender: FDA-Public Use
  Company Number: US-GLAXOSMITHKLINE-US2019GSK064980

PATIENT
  Age: 68 Year
  Sex: Female
  Weight: 45.81 kg

DRUGS (17)
  1. DIGOXINE [Concomitant]
     Active Substance: DIGOXIN
     Indication: PULMONARY ARTERIAL HYPERTENSION
     Dosage: 1.5 DF, QD
     Route: 048
  2. WARFARIN [Concomitant]
     Active Substance: WARFARIN
     Dosage: 2 DF, QD
     Route: 048
  3. FLOLAN [Suspect]
     Active Substance: EPOPROSTENOL SODIUM
     Indication: PULMONARY ARTERIAL HYPERTENSION
     Dosage: 6 NG/KG/MIN, CO
     Route: 042
     Dates: start: 20070209
  4. FLOLAN DILUENT PH 12 [Suspect]
     Active Substance: GLYCINE\MANNITOL\SODIUM CHLORIDE
     Indication: PULMONARY ARTERIAL HYPERTENSION
     Dosage: UNK
     Route: 042
     Dates: start: 20190116
  5. WARFARIN [Concomitant]
     Active Substance: WARFARIN
     Indication: PRODUCT USED FOR UNKNOWN INDICATION
     Dosage: UNK
  6. FLUTICASONE PROPIONATE+SALMETEROL XINAFOATE [Concomitant]
     Active Substance: FLUTICASONE PROPIONATE\SALMETEROL XINAFOATE
     Dosage: 1 PUFF(S), BID
     Route: 055
  7. AMLODIPINE [Concomitant]
     Active Substance: AMLODIPINE BESYLATE
     Indication: HYPERTENSION
     Dosage: 1 DF, QD
  8. SELEXIPAG [Concomitant]
     Active Substance: SELEXIPAG
     Dosage: 6 DF, BID
  9. VITAMIN K2 [Concomitant]
     Active Substance: MENAQUINONE 6
     Dosage: UNK
  10. POTASSIUM CHLORIDE. [Concomitant]
     Active Substance: POTASSIUM CHLORIDE
     Dosage: 2 DF, QD
  11. PROVENTIL HFA [Concomitant]
     Active Substance: ALBUTEROL SULFATE
     Dosage: 1-2 , PUFF(S) PRN (4-6 HOURS)
  12. FLUTICASONE. [Concomitant]
     Active Substance: FLUTICASONE
     Dosage: 2 SPRAY, BID
  13. METOPROLOL TARTRATE. [Concomitant]
     Active Substance: METOPROLOL TARTRATE
     Dosage: 1 DF, BID
     Route: 048
  14. UPTRAVI [Concomitant]
     Active Substance: SELEXIPAG
     Indication: PRODUCT USED FOR UNKNOWN INDICATION
     Dosage: UNK
  15. PREDNISONE. [Concomitant]
     Active Substance: PREDNISONE
     Dosage: 2 DF, QD
  16. EPOPROSTENOL. [Concomitant]
     Active Substance: EPOPROSTENOL
     Dosage: UNK
     Route: 042
  17. FUROSEMIDE. [Concomitant]
     Active Substance: FUROSEMIDE
     Dosage: UNK

REACTIONS (2)
  - Ventricular extrasystoles [Unknown]
  - Cardiac ablation [Unknown]

NARRATIVE: CASE EVENT DATE: 20190308
